FAERS Safety Report 15979952 (Version 2)
Quarter: 2019Q1

REPORT INFORMATION
  Report Type: Spontaneous
  Country: US (occurrence: US)
  Receive Date: 20190219
  Receipt Date: 20190220
  Transmission Date: 20190418
  Serious: No
  Sender: FDA-Public Use
  Company Number: US-ACCORD-068135

PATIENT
  Age: 32 Year
  Sex: Male

DRUGS (1)
  1. BUSPIRONE [Suspect]
     Active Substance: BUSPIRONE HYDROCHLORIDE
     Indication: ANXIETY
     Route: 048

REACTIONS (5)
  - Fatigue [Unknown]
  - Gluten sensitivity [Unknown]
  - Gastrointestinal disorder [Unknown]
  - Arthritis [Unknown]
  - Product substitution issue [Unknown]
